FAERS Safety Report 6785144-1 (Version None)
Quarter: 2010Q2

REPORT INFORMATION
  Report Type: 
  Country: None (occurrence: None)
  Receive Date: 20100618
  Receipt Date: 20100603
  Transmission Date: 20101027
  Serious: Yes (Life-Threatening)
  Sender: FDA-Public Use
  Company Number: 2008002771

PATIENT
  Age: 72 Year
  Sex: Female
  Weight: 46.4 kg

DRUGS (4)
  1. ELOTINIB (ERLOTINIB) (TABLET) (ERLOTINIB) [Suspect]
     Indication: SQUAMOUS CELL CARCINOMA
     Dosage: 150 MG, QD, ORAL
     Route: 048
     Dates: start: 20080126, end: 20081013
  2. PIRENOXINE (PIRENOXINE) [Concomitant]
  3. ADOAIR [Concomitant]
  4. OLOPATADINE HYDROCHLORIDE (OLOPATADINE HYDROHLORIDE) [Concomitant]

REACTIONS (22)
  - ACUTE RESPIRATORY DISTRESS SYNDROME [None]
  - ALOPECIA [None]
  - ATELECTASIS [None]
  - BRONCHIAL OBSTRUCTION [None]
  - CONJUNCTIVITIS [None]
  - DIARRHOEA [None]
  - ENDOCARDITIS [None]
  - GENERAL PHYSICAL HEALTH DETERIORATION [None]
  - HEPATIC CONGESTION [None]
  - MALIGNANT NEOPLASM PROGRESSION [None]
  - MEDIASTINITIS [None]
  - METASTASES TO KIDNEY [None]
  - METASTASES TO LYMPH NODES [None]
  - METASTASIS [None]
  - OESOPHAGEAL FISTULA [None]
  - PARONYCHIA [None]
  - PLEURAL EFFUSION [None]
  - PNEUMONIA ASPIRATION [None]
  - PULMONARY FISTULA [None]
  - RADIATION OESOPHAGITIS [None]
  - RASH [None]
  - UTERINE LEIOMYOMA [None]
